FAERS Safety Report 16642572 (Version 1)
Quarter: 2019Q3

REPORT INFORMATION
  Report Type: Spontaneous
  Country: US (occurrence: US)
  Receive Date: 20190729
  Receipt Date: 20190729
  Transmission Date: 20191004
  Serious: Yes (Other)
  Sender: FDA-Public Use
  Company Number: US-MYLANLABS-2019M1070579

PATIENT
  Age: 35 Year
  Sex: Male

DRUGS (1)
  1. DEXAMETHASONE. [Suspect]
     Active Substance: DEXAMETHASONE
     Indication: HAEMOPHAGOCYTIC LYMPHOHISTIOCYTOSIS
     Dosage: UNK
     Route: 042

REACTIONS (5)
  - Facial paralysis [Unknown]
  - Dysarthria [Unknown]
  - Epstein-Barr virus associated lymphoma [Unknown]
  - Diffuse large B-cell lymphoma [Unknown]
  - Asthenia [Unknown]
